FAERS Safety Report 24675970 (Version 1)
Quarter: 2024Q4

REPORT INFORMATION
  Report Type: Spontaneous
  Country: US (occurrence: US)
  Receive Date: 20241128
  Receipt Date: 20241128
  Transmission Date: 20250115
  Serious: No
  Sender: BRISTOL-MYERS SQUIBB COMPANY
  Company Number: US-BRISTOL-MYERS SQUIBB COMPANY-2024-186163

PATIENT
  Age: 26 Year
  Sex: Female

DRUGS (3)
  1. ZEPOSIA [Suspect]
     Active Substance: OZANIMOD HYDROCHLORIDE
     Indication: Multiple sclerosis
     Dosage: FREQUENCY- FOR 4 DAYS?STARTER KIT
     Route: 048
     Dates: start: 202411
  2. ZEPOSIA [Suspect]
     Active Substance: OZANIMOD HYDROCHLORIDE
     Dosage: FREQUENCY- FOR 3 DAYS?STARTER KIT
     Route: 048
     Dates: start: 202411
  3. ZEPOSIA [Suspect]
     Active Substance: OZANIMOD HYDROCHLORIDE
     Dosage: STARTER KIT
     Route: 048
     Dates: start: 202411

REACTIONS (2)
  - Urinary tract disorder [Unknown]
  - Gastrointestinal disorder [Unknown]
